FAERS Safety Report 9364538 (Version 1)
Quarter: 2013Q2

REPORT INFORMATION
  Report Type: Spontaneous
  Country: CA (occurrence: CA)
  Receive Date: 20130624
  Receipt Date: 20130624
  Transmission Date: 20140414
  Serious: Yes (Disabling, Other)
  Sender: FDA-Public Use
  Company Number: CA-NICOBRDEVP-2013-10885

PATIENT
  Age: 71 Year
  Sex: Male

DRUGS (11)
  1. AMLODIPINE [Suspect]
     Indication: HYPERTENSION
     Dosage: 2.5 MG, DAILY
     Route: 048
     Dates: start: 20130530, end: 20130610
  2. AMLODIPINE [Suspect]
     Indication: ANGINA PECTORIS
     Dosage: 2.5 MG, DAILY
     Route: 048
     Dates: start: 20120813, end: 20130529
  3. COVERSYL PLUS [Concomitant]
     Indication: HYPERTENSION
     Dosage: 1 TABLET , DAILY, 4/1.25
     Route: 048
     Dates: start: 20120730
  4. CARVEDIOL [Concomitant]
     Indication: PRODUCT USED FOR UNKNOWN INDICATION
     Dosage: 12.5 MG, BID
     Route: 048
     Dates: start: 20121104
  5. PLAVIX [Concomitant]
     Indication: ANTIPLATELET THERAPY
     Dosage: 75 MG, DAILY
     Route: 048
     Dates: start: 20120820
  6. CO ATORVASTATIN [Concomitant]
     Indication: HYPERCHOLESTEROLAEMIA
     Dosage: 80 MG, DAILY
     Route: 048
     Dates: start: 20120424
  7. NOVO-SPIROTON [Concomitant]
     Indication: BLOOD ALDOSTERONE
     Dosage: 25 MG, DAILY
     Route: 048
     Dates: start: 20121129
  8. PANTOPRAZOLE [Concomitant]
     Indication: PRODUCT USED FOR UNKNOWN INDICATION
     Dosage: 40 MG, DAILY
     Route: 048
     Dates: start: 20120813
  9. WARFARIN [Concomitant]
     Indication: ANTICOAGULANT THERAPY
     Dosage: 1 MG, UNK
     Route: 048
     Dates: start: 20120625
  10. SYMBICORT [Concomitant]
     Indication: PRODUCT USED FOR UNKNOWN INDICATION
     Dosage: 200/6 , INHALED, 1-2 DOSES TWICE A DAY
     Dates: start: 20120730
  11. COLCHICINE [Concomitant]
     Indication: GOUT
     Dosage: 1 TABLET, TWICE  A DAY (AS NEEDED)
     Dates: start: 20121015

REACTIONS (7)
  - Dizziness [Recovered/Resolved]
  - Asthenia [Recovered/Resolved]
  - Blood pressure decreased [Recovered/Resolved]
  - Heart rate decreased [Recovered/Resolved]
  - Withdrawal hypertension [Unknown]
  - Drug effect increased [Unknown]
  - Heart rate increased [Unknown]
